FAERS Safety Report 8301791-X (Version None)
Quarter: 2012Q2

REPORT INFORMATION
  Report Type: 
  Country: None (occurrence: None)
  Receive Date: 20120417
  Receipt Date: 20120402
  Transmission Date: 20120825
  Serious: Yes (Other)
  Sender: FDA-Public Use
  Company Number: FK201201066

PATIENT
  Age: 74 Year
  Sex: Female

DRUGS (3)
  1. CETRIAXONE (CEFTRIAXONE) [Concomitant]
  2. AMPICILLIN AND SULBACTAM [Suspect]
     Indication: PNEUMONIA
  3. VANCOMYCIN [Concomitant]

REACTIONS (3)
  - RASH MACULAR [None]
  - BLISTER [None]
  - LINEAR IGA DISEASE [None]
